FAERS Safety Report 5347533-1 (Version None)
Quarter: 2007Q2

REPORT INFORMATION
  Report Type: 
  Country: None (occurrence: None)
  Receive Date: 20070504
  Receipt Date: 20061122
  Transmission Date: 20071010
  Serious: Yes (Other)
  Sender: FDA-Public Use
  Company Number: PHEH2006US14553

PATIENT
  Age: 64 Year
  Sex: Female

DRUGS (3)
  1. DIOVAN HCT [Suspect]
     Indication: HYPERTENSION
     Dosage: SEE IMAGE
     Route: 048
     Dates: end: 20061116
  2. DIOVAN HCT [Suspect]
     Indication: HYPERTENSION
     Dosage: SEE IMAGE
     Route: 048
     Dates: start: 20061117, end: 20061120
  3. DIOVAN HCT [Suspect]
     Indication: HYPERTENSION
     Dosage: SEE IMAGE
     Route: 048
     Dates: start: 20061121

REACTIONS (5)
  - FREQUENT BOWEL MOVEMENTS [None]
  - HYPERTENSION [None]
  - MENTAL IMPAIRMENT [None]
  - PAIN IN EXTREMITY [None]
  - POLLAKIURIA [None]
